FAERS Safety Report 10425462 (Version 1)
Quarter: 2014Q3

REPORT INFORMATION
  Report Type: Spontaneous
  Country: US (occurrence: None)
  Receive Date: 20140725
  Receipt Date: 20140725
  Transmission Date: 20150326
  Serious: No
  Sender: FDA-Public Use
  Company Number: AP356-00800-SPO-US

PATIENT
  Age: 53 Year
  Sex: Female
  Weight: 88.5 kg

DRUGS (6)
  1. TAMOXIFEN [Concomitant]
     Active Substance: TAMOXIFEN
  2. BELVIQ [Suspect]
     Active Substance: LORCASERIN HYDROCHLORIDE
     Route: 048
     Dates: end: 2014
  3. ATENOLOL. [Concomitant]
     Active Substance: ATENOLOL
  4. HYDROCHLOROTHIAZIDE. [Concomitant]
     Active Substance: HYDROCHLOROTHIAZIDE
  5. ESCITALOPRAM [Concomitant]
     Active Substance: ESCITALOPRAM OXALATE
  6. VALACYCLOVIR [Concomitant]
     Active Substance: VALACYCLOVIR HYDROCHLORIDE

REACTIONS (1)
  - Mood altered [None]

NARRATIVE: CASE EVENT DATE: 201405
